FAERS Safety Report 4358722-7 (Version None)
Quarter: 2004Q2

REPORT INFORMATION
  Report Type: 
  Country: None (occurrence: None)
  Receive Date: 20040511
  Receipt Date: 20040426
  Transmission Date: 20050107
  Serious: Yes (Other)
  Sender: FDA-Public Use
  Company Number: 206128

PATIENT
  Age: 30 Year
  Sex: Female

DRUGS (9)
  1. NUTROPIN AQ [Suspect]
     Indication: GROWTH HORMONE DEFICIENCY
     Dosage: SEE IMAGE
     Route: 058
     Dates: start: 20040417, end: 20040423
  2. NUTROPIN AQ [Suspect]
     Indication: GROWTH HORMONE DEFICIENCY
     Dosage: SEE IMAGE
     Route: 058
     Dates: start: 20040423
  3. PREVACID [Concomitant]
  4. METHADONE (METHADONE) [Concomitant]
  5. SINGULAIR [Concomitant]
  6. PROVENTIL (ALBUTEROL SULFATE, ALBUTEROL) [Concomitant]
  7. COMBIVENT (ALBUTEROL, ALBUTEROL SULFATE, IPRATROPIUM BROMIDE) [Concomitant]
  8. PROAMATINE (MIDORINE HYDROCHLORIDE) [Concomitant]
  9. DIGOXIN [Concomitant]

REACTIONS (14)
  - AMNESIA [None]
  - BLOOD GLUCOSE INCREASED [None]
  - CHEST PAIN [None]
  - CRYING [None]
  - DISORIENTATION [None]
  - FEELING ABNORMAL [None]
  - HEADACHE [None]
  - HYPOAESTHESIA [None]
  - OVERDOSE [None]
  - PALPITATIONS [None]
  - PHARMACEUTICAL PRODUCT COMPLAINT [None]
  - SLEEP WALKING [None]
  - SOMNOLENCE [None]
  - SWELLING [None]
